FAERS Safety Report 4778797-0 (Version None)
Quarter: 2005Q3

REPORT INFORMATION
  Report Type: 
  Country: None (occurrence: None)
  Receive Date: 20050922
  Receipt Date: 20050912
  Transmission Date: 20060218
  Serious: Yes (Hospitalization, Other)
  Sender: FDA-Public Use
  Company Number: 2005123489

PATIENT
  Age: 57 Year
  Sex: Male
  Weight: 70 kg

DRUGS (13)
  1. ATARAX [Suspect]
     Indication: ENDOSCOPY UPPER GASTROINTESTINAL TRACT
     Dosage: 2 IN 1 D, ORAL
     Route: 048
     Dates: start: 19811214, end: 20050227
  2. ATARAX [Suspect]
     Indication: PRURITUS
     Dosage: 2 IN 1 D, ORAL
     Route: 048
     Dates: start: 19811214, end: 20050227
  3. ATARAX [Suspect]
     Indication: ENDOSCOPY UPPER GASTROINTESTINAL TRACT
     Dosage: 2 IN 1 D, ORAL
     Route: 048
     Dates: start: 19980619
  4. ATARAX [Suspect]
     Indication: PRURITUS
     Dosage: 2 IN 1 D, ORAL
     Route: 048
     Dates: start: 19980619
  5. OTHER COLD COMBINATION PREPARATIONS (OTHER COLD COMBINATION PREPATATIO [Suspect]
     Indication: ILL-DEFINED DISORDER
     Dosage: ORAL
     Route: 048
  6. KAKKON-TO (HERBAL EXTRACTS NOS) [Suspect]
     Indication: ILL-DEFINED DISORDER
     Dosage: ORAL
     Route: 048
     Dates: start: 19950101
  7. CYCLOSPORINE [Suspect]
     Indication: ERYTHRODERMIC PSORIASIS
  8. CYCLOSPORINE [Suspect]
     Indication: PUSTULAR PSORIASIS
  9. OTHER ANTITUSSIVES AND EXPECTORANTS (OTHER ANTITUSSIVES AND EXPECTORAN [Suspect]
     Indication: ILL-DEFINED DISORDER
     Dosage: ORAL
     Route: 048
     Dates: start: 19970101
  10. IOPAMIDOL [Suspect]
     Indication: ILL-DEFINED DISORDER
  11. SYOSEIRYUTO (HERBAL EXTRACTS  NOS) [Concomitant]
  12. ALESION (EPINASTINE HYDROCHLORIDE) [Concomitant]
  13. ALLELOCK (OLOPATADINE HYDROCHLORIDE) [Concomitant]

REACTIONS (8)
  - ACUTE GENERALISED EXANTHEMATOUS PUSTULOSIS [None]
  - DRUG ADMINISTRATION ERROR [None]
  - DRUG ERUPTION [None]
  - ERYTHRODERMIC PSORIASIS [None]
  - LARGE INTESTINE CARCINOMA [None]
  - LYMPHOCYTE STIMULATION TEST POSITIVE [None]
  - SKIN EXFOLIATION [None]
  - SKIN TEST POSITIVE [None]
